FAERS Safety Report 23739085 (Version 1)
Quarter: 2024Q2

REPORT INFORMATION
  Report Type: Spontaneous
  Country: US (occurrence: US)
  Receive Date: 20240413
  Receipt Date: 20240413
  Transmission Date: 20240715
  Serious: Yes (Hospitalization, Other)
  Sender: FDA-Public Use
  Company Number: US-SA-SAC20240412000121

PATIENT
  Age: 62 Year
  Sex: Female

DRUGS (1)
  1. KEVZARA [Suspect]
     Active Substance: SARILUMAB
     Indication: Immunology test abnormal
     Dosage: 200 MG, QOW
     Route: 058

REACTIONS (3)
  - Vestibular neuronitis [Unknown]
  - Bronchitis [Unknown]
  - Product use in unapproved indication [Unknown]
